FAERS Safety Report 19609165 (Version 1)
Quarter: 2021Q3

REPORT INFORMATION
  Report Type: Spontaneous
  Country: US (occurrence: US)
  Receive Date: 20210725
  Receipt Date: 20210725
  Transmission Date: 20211014
  Serious: Yes (Other)
  Sender: FDA-Public Use
  Company Number: None

PATIENT
  Age: 53 Year
  Sex: Female
  Weight: 117 kg

DRUGS (57)
  1. LORATIDINE [Concomitant]
     Active Substance: LORATADINE
  2. METFORMIN [Suspect]
     Active Substance: METFORMIN HYDROCHLORIDE
     Indication: DIABETES MELLITUS
     Dosage: ?          QUANTITY:1 TABLET(S);?
     Route: 048
  3. TYLENOL [Concomitant]
     Active Substance: ACETAMINOPHEN
  4. TRAMADOL. [Concomitant]
     Active Substance: TRAMADOL
  5. VITAMIN D3 [Concomitant]
     Active Substance: CHOLECALCIFEROL
  6. LEVEMIR [Concomitant]
     Active Substance: INSULIN DETEMIR
  7. ALBUTEROL INHALER [Concomitant]
     Active Substance: ALBUTEROL
  8. VITAMIN B12 [Concomitant]
     Active Substance: CYANOCOBALAMIN
  9. MAGNESIUM GLYCINATE [Concomitant]
     Active Substance: MAGNESIUM GLYCINATE
  10. MUSCLE FREEZE NATURAL [Concomitant]
  11. LOSARTAN. [Concomitant]
     Active Substance: LOSARTAN
  12. GABAPENTIN. [Concomitant]
     Active Substance: GABAPENTIN
  13. EXCEDRIN MIGRAINE [Concomitant]
     Active Substance: ACETAMINOPHEN\ASPIRIN\CAFFEINE
  14. BENADRYL [Concomitant]
     Active Substance: DIPHENHYDRAMINE HYDROCHLORIDE
  15. METFORMIN HYDROCHLORIDE. [Concomitant]
     Active Substance: METFORMIN HYDROCHLORIDE
  16. FLONASE [Concomitant]
     Active Substance: FLUTICASONE PROPIONATE
  17. SEROQUEL [Concomitant]
     Active Substance: QUETIAPINE FUMARATE
  18. FUROSEMIDE. [Concomitant]
     Active Substance: FUROSEMIDE
  19. KLOR?CON [Concomitant]
     Active Substance: POTASSIUM CHLORIDE
  20. MEDROXYPROGESTERONE [Concomitant]
     Active Substance: MEDROXYPROGESTERONE
  21. TUMERIC [Concomitant]
     Active Substance: HERBALS\TURMERIC
  22. ASPIRIN. [Concomitant]
     Active Substance: ASPIRIN
  23. LOVENOX [Concomitant]
     Active Substance: ENOXAPARIN SODIUM
  24. ARMOUR THYROID [Concomitant]
     Active Substance: THYROID, PORCINE
  25. METROGEL [Concomitant]
     Active Substance: METRONIDAZOLE
  26. NIZORAL [Concomitant]
     Active Substance: KETOCONAZOLE
  27. PREDNISONE. [Concomitant]
     Active Substance: PREDNISONE
  28. ZINC. [Concomitant]
     Active Substance: ZINC
  29. IRON [Concomitant]
     Active Substance: IRON
  30. LAMICTAL [Concomitant]
     Active Substance: LAMOTRIGINE
  31. NOVOLOG [Concomitant]
     Active Substance: INSULIN ASPART
  32. FAMOTIDINE. [Concomitant]
     Active Substance: FAMOTIDINE
  33. LIPITOR [Concomitant]
     Active Substance: ATORVASTATIN CALCIUM
  34. AZELSTINE [Concomitant]
  35. ACYCLOVIR. [Concomitant]
     Active Substance: ACYCLOVIR
  36. MECLIZINE [Concomitant]
     Active Substance: MECLIZINE HYDROCHLORIDE
  37. BERBERINE HCL [Concomitant]
  38. KRILL [Concomitant]
  39. PROBIOTIC [Concomitant]
     Active Substance: PROBIOTICS NOS
  40. MULTIVITAMIN [Concomitant]
     Active Substance: VITAMINS
  41. LUDEN^S COUGH DROPS [Concomitant]
  42. WARFARIN [Concomitant]
     Active Substance: WARFARIN
  43. GLIPIZIDE. [Concomitant]
     Active Substance: GLIPIZIDE
  44. JANUVIA [Concomitant]
     Active Substance: SITAGLIPTIN PHOSPHATE
  45. SYMBICORT [Concomitant]
     Active Substance: BUDESONIDE\FORMOTEROL FUMARATE DIHYDRATE
  46. HYDROCORTIZONE [Concomitant]
     Active Substance: HYDROCORTISONE
  47. ZIPRASIDONE. [Concomitant]
     Active Substance: ZIPRASIDONE
  48. LIPITOR [Concomitant]
     Active Substance: ATORVASTATIN CALCIUM
  49. IPATROPIUM BROMIDE [Concomitant]
     Active Substance: IPRATROPIUM BROMIDE
  50. CLINDAMYCIN. [Concomitant]
     Active Substance: CLINDAMYCIN
  51. NEXIUM [Concomitant]
     Active Substance: ESOMEPRAZOLE MAGNESIUM
  52. OREGANO. [Concomitant]
     Active Substance: OREGANO
  53. ROBITUSSIN (GUAIFENESIN) [Concomitant]
     Active Substance: GUAIFENESIN
  54. LORAZEPAM. [Concomitant]
     Active Substance: LORAZEPAM
  55. CARVEDILOL. [Concomitant]
     Active Substance: CARVEDILOL
  56. LIDOCAINE. [Concomitant]
     Active Substance: LIDOCAINE
  57. TRIAMCOLONE [Concomitant]

REACTIONS (10)
  - Dizziness [None]
  - Diarrhoea [None]
  - Illness [None]
  - Nausea [None]
  - Thirst [None]
  - Fatigue [None]
  - Feeling hot [None]
  - Headache [None]
  - Blood urine present [None]
  - Asthenia [None]

NARRATIVE: CASE EVENT DATE: 20210601
